FAERS Safety Report 5804742-2 (Version None)
Quarter: 2008Q3

REPORT INFORMATION
  Report Type: 
  Country: None (occurrence: None)
  Receive Date: 20080709
  Receipt Date: 20080701
  Transmission Date: 20090109
  Serious: No
  Sender: FDA-Public Use
  Company Number: US-EISAI MEDICAL RESEARCH-E2020-03011-SPO-US

PATIENT
  Sex: Male

DRUGS (1)
  1. ARICEPT [Suspect]
     Indication: AMNESIA
     Route: 048
     Dates: start: 20060629, end: 20060709

REACTIONS (4)
  - CATARACT [None]
  - GLAUCOMA [None]
  - RETINAL DETACHMENT [None]
  - RETINAL HAEMORRHAGE [None]
